FAERS Safety Report 7685250-3 (Version None)
Quarter: 2011Q3

REPORT INFORMATION
  Report Type: 
  Country: None (occurrence: None)
  Receive Date: 20110816
  Receipt Date: 20110803
  Transmission Date: 20111222
  Serious: Yes (Hospitalization)
  Sender: FDA-Public Use
  Company Number: IT-ELI_LILLY_AND_COMPANY-IT201108001503

PATIENT
  Sex: Male

DRUGS (5)
  1. DIBASE [Concomitant]
     Dosage: 300000 IU/ML, UNKNOWN
     Route: 065
  2. PROCAPTAN [Concomitant]
     Dosage: UNK, UNKNOWN
     Route: 065
  3. HALCION [Concomitant]
     Dosage: UNK, UNKNOWN
     Route: 065
  4. HUMATROPE [Suspect]
     Indication: GROWTH HORMONE DEFICIENCY
     Dosage: 0.6 MG, QD
     Route: 058
     Dates: start: 20021001, end: 20100531
  5. ALLOPURINOL [Concomitant]
     Dosage: 150 MG, UNKNOWN
     Route: 048

REACTIONS (1)
  - NEOPLASM [None]
